FAERS Safety Report 13012924 (Version 2)
Quarter: 2017Q1

REPORT INFORMATION
  Report Type: Report from Study
  Country: US (occurrence: US)
  Receive Date: 20161209
  Receipt Date: 20170102
  Transmission Date: 20170428
  Serious: No
  Sender: FDA-Public Use
  Company Number: US-009507513-1611USA006325

PATIENT
  Age: 5 Decade
  Sex: Male

DRUGS (1)
  1. MEVACOR [Suspect]
     Active Substance: LOVASTATIN
     Indication: LOW DENSITY LIPOPROTEIN INCREASED
     Dosage: UNK

REACTIONS (3)
  - Irritability [Unknown]
  - Cognitive disorder [Unknown]
  - Aggression [Recovered/Resolved]
